FAERS Safety Report 9519665 (Version 1)
Quarter: 2013Q3

REPORT INFORMATION
  Report Type: Report from Study
  Country: US (occurrence: US)
  Receive Date: 20130912
  Receipt Date: 20130912
  Transmission Date: 20140515
  Serious: Yes (Death)
  Sender: FDA-Public Use
  Company Number: US-ROCHE-1274373

PATIENT
  Age: 38 Year
  Sex: Female

DRUGS (4)
  1. HERCEPTIN [Suspect]
     Indication: BREAST CANCER
     Route: 065
  2. HERCEPTIN [Suspect]
     Route: 065
  3. AVASTIN [Suspect]
     Indication: BREAST CANCER
     Route: 065
  4. PARAPLATIN [Concomitant]
     Indication: BREAST CANCER

REACTIONS (1)
  - Disease progression [Fatal]
